FAERS Safety Report 13580876 (Version 1)
Quarter: 2017Q2

REPORT INFORMATION
  Report Type: Report from Study
  Country: BR (occurrence: BR)
  Receive Date: 20170525
  Receipt Date: 20170525
  Transmission Date: 20170830
  Serious: Yes (Other)
  Sender: FDA-Public Use
  Company Number: PHHY2016BR176775

PATIENT
  Sex: Female
  Weight: 62 kg

DRUGS (1)
  1. SANDOSTATIN LAR DEPOT [Suspect]
     Active Substance: OCTREOTIDE ACETATE
     Indication: NEUROENDOCRINE TUMOUR
     Dosage: 30 MG, QMO
     Route: 030
     Dates: start: 201012

REACTIONS (11)
  - Malaise [Unknown]
  - Metastases to liver [Unknown]
  - Diabetes mellitus [Unknown]
  - Depression [Unknown]
  - Fall [Unknown]
  - Erythema [Unknown]
  - Dizziness [Unknown]
  - Upper limb fracture [Unknown]
  - Malignant neoplasm progression [Unknown]
  - Blood pressure abnormal [Unknown]
  - Diarrhoea [Unknown]
